FAERS Safety Report 9521891 (Version 2)
Quarter: 2013Q4

REPORT INFORMATION
  Report Type: Report from Study
  Country: BR (occurrence: BR)
  Receive Date: 20130913
  Receipt Date: 20131219
  Transmission Date: 20140711
  Serious: Yes (Hospitalization, Other)
  Sender: FDA-Public Use
  Company Number: PHHY2013BR098314

PATIENT
  Age: 27 Year
  Sex: Female

DRUGS (15)
  1. BUDESONIDE [Suspect]
     Dosage: 800 UG, DAILY
     Dates: start: 2006
  2. BUDESONIDE [Suspect]
     Dosage: 1200 UG, DAILY
     Route: 055
  3. BUDESONIDE [Suspect]
     Dosage: 800 UG, DAILY
  4. BUDESONIDE [Suspect]
     Dosage: 400 UG, Q12H
  5. BUDESONIDE [Suspect]
     Dosage: 400 UG, QD
  6. FORMOTEROL [Suspect]
     Dosage: 24 UG, DAILY
     Dates: start: 2006
  7. FORMOTEROL [Suspect]
     Dosage: 12 UG, Q12H
  8. FORMOTEROL [Suspect]
     Dosage: 12 UG, QD
  9. BAMIFYLLINE [Suspect]
     Dosage: 600 MG, BID
     Dates: start: 2006
  10. OMEPRAZOLE [Suspect]
     Dosage: 20 MG, DAILY
  11. OMEPRAZOLE [Suspect]
     Dosage: 40 MG, DAILY
  12. CICLESONIDE [Concomitant]
     Dosage: 320 UG, DAILY
  13. CORTICOSTEROID NOS [Concomitant]
     Dosage: UNK UKN, UNK
  14. MONTELUKAST [Concomitant]
     Dosage: 10 MG, DAILY
  15. OMALIZUMAB [Concomitant]
     Dosage: 300 MG, EVERY 15 DAYS
     Route: 058

REACTIONS (25)
  - Respiratory failure [Unknown]
  - Bronchospasm [Unknown]
  - Pneumonia [Unknown]
  - Asthma [Unknown]
  - Dyspnoea [Unknown]
  - Wheezing [Unknown]
  - Rhinorrhoea [Unknown]
  - Sinus disorder [Unknown]
  - Obesity [Unknown]
  - Rhinitis [Unknown]
  - House dust allergy [Unknown]
  - Mycotic allergy [Unknown]
  - Nasal obstruction [Unknown]
  - Snoring [Unknown]
  - Lung hyperinflation [Unknown]
  - Spirometry abnormal [Unknown]
  - Blood immunoglobulin E increased [Unknown]
  - Nasal septum deviation [Unknown]
  - Gastrooesophageal reflux disease [Unknown]
  - Atelectasis [Unknown]
  - Emphysema [Unknown]
  - Sleep apnoea syndrome [Unknown]
  - Sneezing [Unknown]
  - Sinusitis [Unknown]
  - Weight decreased [Unknown]
